FAERS Safety Report 4634815-1 (Version None)
Quarter: 2005Q2

REPORT INFORMATION
  Report Type: 
  Country: None (occurrence: None)
  Receive Date: 20050412
  Receipt Date: 20050401
  Transmission Date: 20051028
  Serious: Yes (Disabling, Other)
  Sender: FDA-Public Use
  Company Number: 2005029294

PATIENT
  Age: 10 Year
  Sex: Female

DRUGS (2)
  1. CLINDAMYCIN PHOSPHATE [Suspect]
     Indication: APPENDICITIS
     Dosage: INTRAVENOUS
     Route: 042
     Dates: start: 20041201
  2. MORPHINE SULFATE [Concomitant]

REACTIONS (5)
  - ABASIA [None]
  - BALANCE DISORDER [None]
  - DEAFNESS [None]
  - DIZZINESS [None]
  - TINNITUS [None]
